FAERS Safety Report 6832320-5 (Version None)
Quarter: 2010Q3

REPORT INFORMATION
  Report Type: 
  Country: None (occurrence: None)
  Receive Date: 20100712
  Receipt Date: 20100628
  Transmission Date: 20110219
  Serious: Yes (Death, Hospitalization)
  Sender: FDA-Public Use
  Company Number: IE-MEDIMMUNE-MEDI-0011223

PATIENT
  Sex: Female

DRUGS (13)
  1. SYNAGIS [Suspect]
     Route: 030
     Dates: start: 20091007, end: 20100201
  2. VALPROATE SODIUM [Concomitant]
     Route: 048
     Dates: end: 20100412
  3. GAVISCON [Concomitant]
  4. FERROUS SULFATE [Concomitant]
     Route: 048
  5. ABIDEL [Concomitant]
  6. BUDESONIDE [Concomitant]
  7. FUROSEMIDE [Concomitant]
     Route: 048
  8. OMEPRAZOLE [Concomitant]
     Route: 048
  9. BACLOFEN [Concomitant]
     Route: 048
  10. KAPSOVIT [Concomitant]
     Route: 048
  11. ALBUTEROL [Concomitant]
  12. CODEINE PHOSPHATE [Concomitant]
  13. AMOXICILLIN SODIUM [Concomitant]
     Route: 048

REACTIONS (5)
  - CEREBRAL PALSY [None]
  - CHRONIC RESPIRATORY FAILURE [None]
  - CONVULSION [None]
  - DEVELOPMENTAL DELAY [None]
  - FAILURE TO THRIVE [None]
